FAERS Safety Report 22328563 (Version 1)
Quarter: 2023Q2

REPORT INFORMATION
  Report Type: Spontaneous
  Country: US (occurrence: US)
  Receive Date: 20230517
  Receipt Date: 20230517
  Transmission Date: 20230721
  Serious: No
  Sender: FDA-Public Use
  Company Number: US-ABBVIE-4747160

PATIENT
  Sex: Female

DRUGS (1)
  1. HUMIRA [Suspect]
     Active Substance: ADALIMUMAB
     Indication: Product used for unknown indication
     Route: 058

REACTIONS (8)
  - Skin discolouration [Unknown]
  - Injection site rash [Unknown]
  - Hypersensitivity [Unknown]
  - Rash [Unknown]
  - Exfoliative rash [Unknown]
  - Skin erosion [Unknown]
  - Skin disorder [Unknown]
  - Skin infection [Unknown]
